FAERS Safety Report 8816538 (Version 1)
Quarter: 2012Q4

REPORT INFORMATION
  Report Type: Spontaneous
  Country: US (occurrence: None)
  Receive Date: 20120927
  Receipt Date: 20120927
  Transmission Date: 20130627
  Serious: Yes (Death)
  Sender: FDA-Public Use
  Company Number: PRED20120056

PATIENT
  Age: 10 Year
  Sex: Male

DRUGS (4)
  1. PREDNISONE [Suspect]
     Indication: IMMUNOSUPPRESSION
  2. MYCOPHENOLATE MOFETIL [Suspect]
     Indication: IMMUNOSUPPRESSION
  3. TACROLIMUS [Suspect]
     Indication: IMMUNOSUPPRESSION
  4. SYNTHROID [Concomitant]

REACTIONS (34)
  - Sarcoidosis [None]
  - Atrioventricular block [None]
  - Hypothyroidism [None]
  - Developmental delay [None]
  - Growth retardation [None]
  - Polyuria [None]
  - Polydipsia [None]
  - Hypercalcaemia [None]
  - Nephrolithiasis [None]
  - Isosthenuria [None]
  - Blood alkaline phosphatase increased [None]
  - Blood parathyroid hormone decreased [None]
  - C-reactive protein increased [None]
  - Lymphadenitis [None]
  - Nephrocalcinosis [None]
  - Kidney fibrosis [None]
  - Glomerulosclerosis [None]
  - Lymphadenopathy [None]
  - Hepatosplenomegaly [None]
  - Granulomatous liver disease [None]
  - Splenic granuloma [None]
  - Pulmonary mass [None]
  - Hilar lymphadenopathy [None]
  - Epstein-Barr virus antibody positive [None]
  - Blood phosphorus increased [None]
  - Coronary ostial stenosis [None]
  - Renal impairment [None]
  - Osteopenia [None]
  - Aortic calcification [None]
  - Left ventricular hypertrophy [None]
  - Diastolic dysfunction [None]
  - Brain natriuretic peptide increased [None]
  - ECG signs of myocardial ischaemia [None]
  - Anastomotic haemorrhage [None]
